FAERS Safety Report 20617135 (Version 1)
Quarter: 2022Q1

REPORT INFORMATION
  Report Type: Spontaneous
  Country: FR (occurrence: FR)
  Receive Date: 20220321
  Receipt Date: 20220321
  Transmission Date: 20220423
  Serious: Yes (Other)
  Sender: FDA-Public Use
  Company Number: None

PATIENT
  Age: 49 Year
  Sex: Male
  Weight: 61 kg

DRUGS (13)
  1. RISPERDAL [Suspect]
     Active Substance: RISPERIDONE
     Indication: Pain
     Dosage: 0,5 MG PAR JOUR
     Route: 048
     Dates: start: 20220209
  2. LOXAPINE SUCCINATE [Suspect]
     Active Substance: LOXAPINE SUCCINATE
     Indication: Pain
     Dosage: 5 MG 1 HEURE AVANT LA RADIOTHERAPIE
     Route: 048
     Dates: start: 20220210, end: 20220223
  3. KETAMINE [Suspect]
     Active Substance: KETAMINE
     Indication: Pain
     Dosage: 10 MG BOLUS AVANT RADIOTHERAPIE
     Route: 042
     Dates: start: 20220210, end: 20220223
  4. KETAMINE [Suspect]
     Active Substance: KETAMINE
     Dosage: 49,5 MG SUR 24 HEURES
     Route: 042
     Dates: start: 20220210, end: 20220211
  5. ALPRAZOLAM [Suspect]
     Active Substance: ALPRAZOLAM
     Indication: Pain
     Dosage: 0,25 - 0,25 - 0,5 MG
     Route: 048
     Dates: start: 20220208
  6. VENLAFAXINE [Suspect]
     Active Substance: VENLAFAXINE HYDROCHLORIDE
     Indication: Pain
     Dosage: FORME A LIBERATION PROLONGEE 75 MG PAR JOUR
     Route: 048
     Dates: start: 20220222
  7. VENLAFAXINE [Suspect]
     Active Substance: VENLAFAXINE HYDROCHLORIDE
     Dosage: FORME A LIBERATION PROLONGEE 37,5 MG PAR JOUR
     Route: 048
     Dates: start: 20220208, end: 20220222
  8. GABAPENTIN [Suspect]
     Active Substance: GABAPENTIN
     Indication: Pain
     Dosage: 100 - 100 - 200 MG
     Route: 048
     Dates: start: 20220208, end: 20220211
  9. GABAPENTIN [Suspect]
     Active Substance: GABAPENTIN
     Dosage: 300 - 300 - 500 MG
     Route: 048
     Dates: start: 20220216
  10. GABAPENTIN [Suspect]
     Active Substance: GABAPENTIN
     Dosage: 200 - 200 - 400 MG
     Route: 048
     Dates: start: 20220211, end: 20220216
  11. CYANOCOBALAMIN [Concomitant]
     Active Substance: CYANOCOBALAMIN
     Indication: Product used for unknown indication
     Dosage: 1000 UG TOUS LES 2 MOIS
     Route: 048
  12. OXYCODONE HYDROCHLORIDE [Concomitant]
     Active Substance: OXYCODONE HYDROCHLORIDE
     Indication: Pain
     Dosage: 60 MG/JOUR
     Dates: start: 202201
  13. FOLIC ACID [Concomitant]
     Active Substance: FOLIC ACID
     Indication: Product used for unknown indication
     Dosage: 0,4 MG LE MATIN
     Route: 048

REACTIONS (1)
  - Supraventricular extrasystoles [Not Recovered/Not Resolved]

NARRATIVE: CASE EVENT DATE: 20220221
